FAERS Safety Report 20879074 (Version 2)
Quarter: 2022Q3

REPORT INFORMATION
  Report Type: Spontaneous
  Country: US (occurrence: None)
  Receive Date: 20220526
  Receipt Date: 20220927
  Transmission Date: 20221027
  Serious: Yes (Other)
  Sender: FDA-Public Use
  Company Number: US-ROCHE-3102057

PATIENT
  Sex: Female

DRUGS (6)
  1. XOLAIR [Suspect]
     Active Substance: OMALIZUMAB
     Indication: Asthma
     Route: 058
     Dates: start: 2003
  2. XOLAIR [Suspect]
     Active Substance: OMALIZUMAB
     Dosage: START DATE: 2006/2007
     Route: 058
     Dates: end: 202008
  3. XOLAIR [Suspect]
     Active Substance: OMALIZUMAB
     Dosage: ONGOING
     Route: 058
     Dates: start: 20220117
  4. SINGULARIS SUPERIOR ASHWAGANDHA FORTE [Concomitant]
     Route: 065
  5. INCRUSE ELLIPTA [Concomitant]
     Active Substance: UMECLIDINIUM BROMIDE
     Route: 065
  6. FLONASE ALLERGY RELIEF [Concomitant]
     Active Substance: FLUTICASONE PROPIONATE
     Route: 065

REACTIONS (6)
  - Off label use [Unknown]
  - Breast cancer [Recovered/Resolved]
  - Atrioventricular block [Unknown]
  - Pneumonia [Recovered/Resolved]
  - Physical disability [Unknown]
  - Visual impairment [Unknown]
